FAERS Safety Report 4442380-7 (Version None)
Quarter: 2004Q3

REPORT INFORMATION
  Report Type: 
  Country: None (occurrence: None)
  Receive Date: 20040903
  Receipt Date: 20040505
  Transmission Date: 20050211
  Serious: Yes (Other)
  Sender: FDA-Public Use
  Company Number: 2004UW09268

PATIENT
  Age: 45 Year
  Sex: Male

DRUGS (5)
  1. SEROQUEL [Suspect]
     Dosage: 600 MG HS PO
     Route: 048
  2. CRESTOR [Suspect]
     Indication: HYPERCHOLESTEROLAEMIA
  3. DEPAKOTE [Concomitant]
  4. LEXAPRO [Concomitant]
  5. LAMICTAL [Concomitant]

REACTIONS (3)
  - DRUG INTERACTION [None]
  - FATIGUE [None]
  - SOMNOLENCE [None]
